FAERS Safety Report 6755801-1 (Version None)
Quarter: 2010Q2

REPORT INFORMATION
  Report Type: 
  Country: None (occurrence: None)
  Receive Date: 20100604
  Receipt Date: 20100528
  Transmission Date: 20101027
  Serious: Yes (Hospitalization)
  Sender: FDA-Public Use
  Company Number: JP-ASTRAZENECA-2010SE19622

PATIENT
  Age: 90 Year
  Sex: Male
  Weight: 42 kg

DRUGS (3)
  1. OMEPRAL [Suspect]
     Indication: GASTRIC ULCER HAEMORRHAGE
     Route: 048
     Dates: start: 20100405, end: 20100426
  2. GLUCOSE [Concomitant]
     Dosage: TOTAL 200 ML WITH NEOAMIYU (AMINO ACID PREPARATIONS FOR RENAL INSUFFICIENCY) ON THE DAY OF DIALYSIS
     Route: 041
     Dates: start: 20100401
  3. NEOAMIYU [Concomitant]
     Dosage: TOTAL 200 ML WITH 50 % GLUCOSE SOLUTION ON THE DAY OF DIALYSIS
     Route: 041
     Dates: start: 20100401

REACTIONS (1)
  - CLOSTRIDIUM DIFFICILE COLITIS [None]
